FAERS Safety Report 9659435 (Version 1)
Quarter: 2013Q4

REPORT INFORMATION
  Report Type: Report from Study
  Country: CA (occurrence: CA)
  Receive Date: 20131031
  Receipt Date: 20131031
  Transmission Date: 20140711
  Serious: Yes (Other)
  Sender: FDA-Public Use
  Company Number: CA-JNJFOC-20131014857

PATIENT
  Age: 21 Year
  Sex: Female
  Weight: 67 kg

DRUGS (3)
  1. REMICADE [Suspect]
     Indication: COLITIS ULCERATIVE
     Route: 042
     Dates: start: 20130912
  2. SALOFALK [Concomitant]
     Dosage: 8 PILLS A DAY
     Route: 065
  3. IMURAN [Concomitant]
     Route: 048

REACTIONS (2)
  - Haemoglobin decreased [Unknown]
  - Hand fracture [Not Recovered/Not Resolved]
